FAERS Safety Report 24073672 (Version 2)
Quarter: 2024Q4

REPORT INFORMATION
  Report Type: Spontaneous
  Country: US (occurrence: US)
  Receive Date: 20240710
  Receipt Date: 20241009
  Transmission Date: 20250115
  Serious: No
  Sender: PAREXEL
  Company Number: US-NOVEN PHARMACEUTICALS, INC.-2024-NOV-US000611

PATIENT
  Age: 11 Year
  Sex: Male

DRUGS (2)
  1. XELSTRYM [Suspect]
     Active Substance: DEXTROAMPHETAMINE
     Indication: Autism spectrum disorder
     Dosage: 9 MG, UNKNOWN
     Route: 062
  2. XELSTRYM [Suspect]
     Active Substance: DEXTROAMPHETAMINE
     Indication: Attention deficit hyperactivity disorder

REACTIONS (4)
  - Adhesive tape use [Unknown]
  - Wrong technique in product usage process [Unknown]
  - Product adhesion issue [Unknown]
  - No adverse event [Unknown]
